FAERS Safety Report 5143068-X (Version None)
Quarter: 2006Q4

REPORT INFORMATION
  Report Type: 
  Country: None (occurrence: None)
  Receive Date: 20061103
  Receipt Date: 20061025
  Transmission Date: 20070319
  Serious: Yes (Other)
  Sender: FDA-Public Use
  Company Number: FR-JNJFOC-20061006015

PATIENT
  Age: 70 Year
  Sex: Female
  Weight: 100 kg

DRUGS (4)
  1. REMICADE [Suspect]
     Indication: VASCULITIS
     Route: 042
  2. REMICADE [Suspect]
     Indication: RHEUMATOID ARTHRITIS
     Route: 042
  3. CLARYTINE [Concomitant]
     Indication: PREMEDICATION
     Route: 065
  4. CORTICOSTEROIDS [Concomitant]
     Indication: PREMEDICATION
     Route: 065

REACTIONS (9)
  - BACK PAIN [None]
  - CHEST PAIN [None]
  - CHILLS [None]
  - HYPERSENSITIVITY [None]
  - HYPERTENSION [None]
  - INFUSION RELATED REACTION [None]
  - NAUSEA [None]
  - TACHYCARDIA [None]
  - VOMITING [None]
